FAERS Safety Report 21275218 (Version 1)
Quarter: 2022Q3

REPORT INFORMATION
  Report Type: Spontaneous
  Country: US (occurrence: None)
  Receive Date: 20220831
  Receipt Date: 20220831
  Transmission Date: 20221027
  Serious: Yes (Disabling)
  Sender: FDA-Public Use
  Company Number: None

PATIENT
  Age: 60 Year
  Sex: Male

DRUGS (8)
  1. ILUVIEN [Suspect]
     Active Substance: FLUOCINOLONE ACETONIDE
  2. LANTUS [Concomitant]
     Active Substance: INSULIN GLARGINE
  3. LISINOPRIL [Concomitant]
     Active Substance: LISINOPRIL
  4. Atovorastatin [Concomitant]
  5. Latanoprist [Concomitant]
  6. ASPIRIN [Concomitant]
     Active Substance: ASPIRIN
  7. IBUPROFEN [Concomitant]
     Active Substance: IBUPROFEN
  8. TYLENOL [Concomitant]
     Active Substance: ACETAMINOPHEN

REACTIONS (1)
  - Vitreous floaters [None]

NARRATIVE: CASE EVENT DATE: 20220830
